FAERS Safety Report 7098304-X (Version None)
Quarter: 2010Q4

REPORT INFORMATION
  Report Type: 
  Country: None (occurrence: None)
  Receive Date: 20101112
  Receipt Date: 20101104
  Transmission Date: 20110411
  Serious: No
  Sender: FDA-Public Use
  Company Number: US-PFIZER INC-2010141651

PATIENT
  Sex: Female

DRUGS (2)
  1. LYRICA [Suspect]
     Dosage: 25MG MANE + 100MG NOCT
     Route: 048
  2. AMBIEN [Concomitant]
     Dosage: UNK

REACTIONS (2)
  - HYPERHIDROSIS [None]
  - SLEEP DISORDER [None]
